FAERS Safety Report 5498234-0 (Version None)
Quarter: 2007Q4

REPORT INFORMATION
  Report Type: 
  Country: None (occurrence: None)
  Receive Date: 20071025
  Receipt Date: 20070412
  Transmission Date: 20080405
  Serious: No
  Sender: FDA-Public Use
  Company Number: A0647454A

PATIENT

DRUGS (1)
  1. ADVAIR DISKUS 100/50 [Suspect]
     Dosage: 2PUFF IN THE MORNING
     Dates: start: 20070301

REACTIONS (2)
  - BLOOD PRESSURE INCREASED [None]
  - RASH [None]
